FAERS Safety Report 6400239-X (Version None)
Quarter: 2009Q4

REPORT INFORMATION
  Report Type: 
  Country: None (occurrence: None)
  Receive Date: 20091014
  Receipt Date: 20091005
  Transmission Date: 20100525
  Serious: Yes (Other)
  Sender: FDA-Public Use
  Company Number: ES-PFIZER INC-2009278347

PATIENT
  Age: 36 Year

DRUGS (1)
  1. HYDROXYZINE HCL [Suspect]
     Indication: URTICARIA
     Dosage: 25 MG, UNK

REACTIONS (2)
  - TYPE I HYPERSENSITIVITY [None]
  - URTICARIA [None]
